FAERS Safety Report 17086828 (Version 2)
Quarter: 2020Q1

REPORT INFORMATION
  Report Type: Spontaneous
  Country: US (occurrence: US)
  Receive Date: 20191128
  Receipt Date: 20200102
  Transmission Date: 20200409
  Serious: No
  Sender: FDA-Public Use
  Company Number: US-ASTRAZENECA-2019SF57115

PATIENT
  Age: 459 Month
  Sex: Male
  Weight: 126.4 kg

DRUGS (2)
  1. FASENRA [Suspect]
     Active Substance: BENRALIZUMAB
     Indication: ASTHMA
     Dosage: 30.0MG UNKNOWN
     Route: 058
     Dates: start: 201909
  2. FASENRA [Suspect]
     Active Substance: BENRALIZUMAB
     Indication: ASTHMA
     Dosage: 30.0MG UNKNOWN
     Route: 058
     Dates: start: 201902, end: 201909

REACTIONS (3)
  - Asthma [Recovered/Resolved]
  - Intentional product misuse [Unknown]
  - Nasal congestion [Unknown]

NARRATIVE: CASE EVENT DATE: 201907
